FAERS Safety Report 6739032-7 (Version None)
Quarter: 2010Q2

REPORT INFORMATION
  Report Type: 
  Country: None (occurrence: None)
  Receive Date: 20100524
  Receipt Date: 20100524
  Transmission Date: 20101027
  Serious: No
  Sender: FDA-Public Use
  Company Number: None

PATIENT
  Age: 41 Year
  Sex: Female
  Weight: 59.8748 kg

DRUGS (2)
  1. SEASONIQUE [Suspect]
     Indication: POLYCYSTIC OVARIES
     Dosage: 1 TABLET DAILY PO
     Route: 048
     Dates: start: 20080217, end: 20080625
  2. SEASONIQUE [Suspect]

REACTIONS (2)
  - ADNEXA UTERI PAIN [None]
  - SKIN DISCOLOURATION [None]
